FAERS Safety Report 9547524 (Version 6)
Quarter: 2017Q3

REPORT INFORMATION
  Report Type: Report from Study
  Country: CA (occurrence: CA)
  Receive Date: 20130924
  Receipt Date: 20170921
  Transmission Date: 20171128
  Serious: Yes (Hospitalization)
  Sender: FDA-Public Use
  Company Number: CA-JNJFOC-20130909593

PATIENT
  Age: 70 Year
  Sex: Female
  Weight: 64 kg

DRUGS (2)
  1. STELARA [Suspect]
     Active Substance: USTEKINUMAB
     Indication: PSORIASIS
     Dosage: APPROXIMATELY 12 INJECTIONS RECEIVED TOTALLY
     Route: 058
     Dates: start: 201002
  2. STELARA [Suspect]
     Active Substance: USTEKINUMAB
     Indication: PSORIASIS
     Dosage: APPROXIMATELY 12 INJECTIONS RECEIVED TOTALLY
     Route: 058
     Dates: start: 20100305

REACTIONS (1)
  - Carcinoid tumour [Recovered/Resolved]

NARRATIVE: CASE EVENT DATE: 201304
